FAERS Safety Report 6410816-8 (Version None)
Quarter: 2009Q4

REPORT INFORMATION
  Report Type: 
  Country: None (occurrence: None)
  Receive Date: 20091022
  Receipt Date: 20091016
  Transmission Date: 20100525
  Serious: Yes (Hospitalization)
  Sender: FDA-Public Use
  Company Number: US-B.I. PHARMACEUTICALS,INC./RIDGEFIELD-2009-BP-12115BP

PATIENT
  Sex: Female

DRUGS (5)
  1. DULCOLAX [Suspect]
     Indication: CONSTIPATION
     Dosage: 15 MG
     Route: 048
     Dates: start: 20091013, end: 20091014
  2. DULCOLAX [Suspect]
     Indication: CONSTIPATION
     Dosage: 10 MG
     Route: 054
     Dates: start: 20091016
  3. MIRALAX [Concomitant]
     Indication: CONSTIPATION
     Dates: start: 20090901
  4. ADVAIR DISKUS 100/50 [Concomitant]
     Indication: ASTHMA
  5. SPIRIVA [Concomitant]
     Indication: ASTHMA
     Dates: start: 20090801

REACTIONS (2)
  - ABDOMINAL PAIN UPPER [None]
  - DIARRHOEA [None]
